FAERS Safety Report 25496176 (Version 1)
Quarter: 2025Q2

REPORT INFORMATION
  Report Type: Spontaneous
  Country: US (occurrence: US)
  Receive Date: 20250630
  Receipt Date: 20250630
  Transmission Date: 20250716
  Serious: Yes (Death, Other)
  Sender: KNIGHT THERAPEUTICS
  Company Number: 23972076

PATIENT
  Age: 81 Year
  Sex: Male
  Weight: 58.5 kg

DRUGS (4)
  1. IMPAVIDO [Suspect]
     Active Substance: MILTEFOSINE
     Indication: Acanthamoeba infection
  2. SULFADIAZINE [Suspect]
     Active Substance: SULFADIAZINE
  3. VORICONAZOLE [Suspect]
     Active Substance: VORICONAZOLE
  4. FLUCYTOSINE [Suspect]
     Active Substance: FLUCYTOSINE

REACTIONS (4)
  - Renal failure [Fatal]
  - Product use in unapproved indication [Unknown]
  - Drug ineffective for unapproved indication [Fatal]
  - Diarrhoea [Fatal]

NARRATIVE: CASE EVENT DATE: 20240602
